FAERS Safety Report 7593215-5 (Version None)
Quarter: 2011Q2

REPORT INFORMATION
  Report Type: 
  Country: None (occurrence: None)
  Receive Date: 20110628
  Receipt Date: 20110616
  Transmission Date: 20111010
  Serious: Yes (Death)
  Sender: FDA-Public Use
  Company Number: EU-2011-10094

PATIENT
  Age: 66 Year
  Sex: Male

DRUGS (12)
  1. ASPEGIC (ACETYLSALICYLATE LYSINE) [Concomitant]
  2. CELITOP (ETOPOSIDE) CAPSULE [Concomitant]
  3. SKENAN (MORPHINE SULFATE) TABLET [Concomitant]
  4. KEPPRA [Concomitant]
  5. ATORVASTATIN CALCIUM [Concomitant]
  6. TENORMIN [Concomitant]
  7. PANTOPRAZOLE [Concomitant]
  8. ZESTRIL [Concomitant]
  9. SAMSCA [Suspect]
     Indication: HYPONATRAEMIA
     Dosage: 15 MG MILLIGRAM(S), DAILY DOSE, ORAL30 MG DAILY DOSE, ORAL
     Route: 048
     Dates: start: 20101201, end: 20100101
  10. SAMSCA [Suspect]
     Indication: HYPONATRAEMIA
     Dosage: 15 MG MILLIGRAM(S), DAILY DOSE, ORAL30 MG DAILY DOSE, ORAL
     Route: 048
     Dates: start: 20101126, end: 20101130
  11. BACTRIM [Concomitant]
  12. ORAMORPH SR [Concomitant]

REACTIONS (7)
  - VOMITING [None]
  - NAUSEA [None]
  - METASTASES TO CENTRAL NERVOUS SYSTEM [None]
  - SMALL CELL LUNG CANCER METASTATIC [None]
  - SOMNOLENCE [None]
  - STATUS EPILEPTICUS [None]
  - HYPONATRAEMIA [None]
